FAERS Safety Report 21295031 (Version 1)
Quarter: 2022Q3

REPORT INFORMATION
  Report Type: Spontaneous
  Country: AT (occurrence: AT)
  Receive Date: 20220905
  Receipt Date: 20220905
  Transmission Date: 20221027
  Serious: Yes (Other)
  Sender: FDA-Public Use
  Company Number: AT-JNJFOC-20220855591

PATIENT
  Age: 58 Year
  Sex: Male

DRUGS (3)
  1. ERLEADA [Interacting]
     Active Substance: APALUTAMIDE
     Indication: Product used for unknown indication
     Route: 048
  2. METFORMIN [Concomitant]
     Active Substance: METFORMIN HYDROCHLORIDE
     Indication: Product used for unknown indication
  3. DEGARELIX [Concomitant]
     Active Substance: DEGARELIX
     Indication: Product used for unknown indication

REACTIONS (9)
  - Acute kidney injury [Unknown]
  - Hydronephrosis [Unknown]
  - Metastases to bone [Unknown]
  - Diabetes mellitus [Recovering/Resolving]
  - Drug interaction [Unknown]
  - Lipids increased [Not Recovered/Not Resolved]
  - Blood uric acid increased [Unknown]
  - Prostatic obstruction [Unknown]
  - Prostatic specific antigen increased [Recovering/Resolving]

NARRATIVE: CASE EVENT DATE: 20201001
